FAERS Safety Report 5818681-4 (Version None)
Quarter: 2008Q3

REPORT INFORMATION
  Report Type: 
  Country: None (occurrence: None)
  Receive Date: 20080717
  Receipt Date: 20080717
  Transmission Date: 20090109
  Serious: Yes (Other)
  Sender: FDA-Public Use
  Company Number: None

PATIENT
  Age: 51 Year
  Sex: Male
  Weight: 79.3795 kg

DRUGS (1)
  1. CHANTIX [Suspect]
     Indication: SMOKING CESSATION THERAPY
     Dosage: 1 TABLET EVERY MORNING + 1 AT  2 TIMES A DAY
     Dates: start: 20080517, end: 20080519

REACTIONS (3)
  - ANXIETY [None]
  - FATIGUE [None]
  - NAUSEA [None]
